FAERS Safety Report 9168084 (Version 1)
Quarter: 2013Q1

REPORT INFORMATION
  Report Type: Spontaneous
  Country: TR (occurrence: None)
  Receive Date: 20130307
  Receipt Date: 20130307
  Transmission Date: 20140127
  Serious: Yes (Other)
  Sender: FDA-Public Use
  Company Number: 1620072

PATIENT
  Sex: 0

DRUGS (1)
  1. METHOTREXATE [Suspect]

REACTIONS (2)
  - Mucosal inflammation [None]
  - Toxicity to various agents [None]
